FAERS Safety Report 8854065 (Version 1)
Quarter: 2012Q4

REPORT INFORMATION
  Report Type: Spontaneous
  Country: US (occurrence: None)
  Receive Date: 20121019
  Receipt Date: 20121019
  Transmission Date: 20130627
  Serious: Yes (Other)
  Sender: FDA-Public Use
  Company Number: None

PATIENT
  Age: 39 Year
  Sex: Female
  Weight: 90.72 kg

DRUGS (2)
  1. MIRENA [Suspect]
     Indication: PID
     Dates: start: 20091215
  2. MIRENA [Concomitant]

REACTIONS (6)
  - Pelvic inflammatory disease [None]
  - Vomiting [None]
  - Fatigue [None]
  - Device related infection [None]
  - Dyspareunia [None]
  - Tachycardia [None]
